FAERS Safety Report 9106272 (Version 3)
Quarter: 2013Q2

REPORT INFORMATION
  Report Type: Spontaneous
  Country: GB (occurrence: GB)
  Receive Date: 20130221
  Receipt Date: 20130422
  Transmission Date: 20140414
  Serious: Yes (Other)
  Sender: FDA-Public Use
  Company Number: GB-PFIZER INC-2013063678

PATIENT
  Age: 56 Year
  Sex: Female

DRUGS (3)
  1. TRANEXAMIC ACID [Suspect]
     Indication: HAEMORRHAGE
     Dosage: 6 TABLETS DAILY
  2. NORETHISTERONE [Suspect]
     Indication: MENORRHAGIA
     Dosage: 15 MG DAILY
  3. RAMIPRIL [Concomitant]
     Dosage: 10 MG, 1X/DAY

REACTIONS (8)
  - Type 1 diabetes mellitus [Unknown]
  - Urine ketone body present [Unknown]
  - Drug ineffective [Unknown]
  - Metabolic syndrome [Unknown]
  - Visual impairment [Unknown]
  - Muscle spasms [Unknown]
  - Weight decreased [Unknown]
  - Type 2 diabetes mellitus [Unknown]
